FAERS Safety Report 16994070 (Version 1)
Quarter: 2019Q4

REPORT INFORMATION
  Report Type: Spontaneous
  Country: US (occurrence: US)
  Receive Date: 20190924
  Receipt Date: 20190924
  Transmission Date: 20200122
  Serious: No
  Sender: FDA-Public Use
  Company Number: None

PATIENT
  Age: 50 Year
  Sex: Male

DRUGS (1)
  1. SPRYCEL [Suspect]
     Active Substance: DASATINIB
     Indication: CHRONIC MYELOID LEUKAEMIA
     Route: 048
     Dates: start: 201809

REACTIONS (5)
  - Burning sensation [None]
  - Peripheral coldness [None]
  - Weight increased [None]
  - Contusion [None]
  - Headache [None]

NARRATIVE: CASE EVENT DATE: 20180929
